FAERS Safety Report 7808979-2 (Version None)
Quarter: 2011Q4

REPORT INFORMATION
  Report Type: 
  Country: None (occurrence: None)
  Receive Date: 20111006
  Receipt Date: 20110920
  Transmission Date: 20120403
  Serious: Yes (Other)
  Sender: FDA-Public Use
  Company Number: 2011MA014189

PATIENT
  Age: 50 Year
  Sex: Male

DRUGS (1)
  1. GEMCITABINE HYDROCHLORIDE [Suspect]
     Indication: SMALL INTESTINE CARCINOMA
     Dosage: 1000 MG/M**2;QW;

REACTIONS (6)
  - PAIN [None]
  - BLOOD CREATINE PHOSPHOKINASE INCREASED [None]
  - OEDEMA [None]
  - MUSCLE NECROSIS [None]
  - PAIN IN EXTREMITY [None]
  - INFLAMMATION [None]
